FAERS Safety Report 4984649-3 (Version None)
Quarter: 2006Q2

REPORT INFORMATION
  Report Type: 
  Country: None (occurrence: None)
  Receive Date: 20060427
  Receipt Date: 20051003
  Transmission Date: 20061013
  Serious: Yes (Other)
  Sender: FDA-Public Use
  Company Number: US-MERCK-0510USA02706

PATIENT
  Age: 55 Year
  Sex: Female
  Weight: 105 kg

DRUGS (2)
  1. VIOXX [Suspect]
     Indication: ARTHRITIS
     Route: 048
     Dates: start: 20000601, end: 20040805
  2. VIOXX [Suspect]
     Indication: PAIN MANAGEMENT
     Route: 048
     Dates: start: 20000601, end: 20040805

REACTIONS (26)
  - ANGINA PECTORIS [None]
  - ARTHROPOD BITE [None]
  - BLOOD CREATININE INCREASED [None]
  - BLOOD UREA INCREASED [None]
  - BRONCHOSPASM [None]
  - CARDIOMEGALY [None]
  - CORONARY ARTERY DISEASE [None]
  - DEPRESSION [None]
  - DIVERTICULITIS [None]
  - DYSLIPIDAEMIA [None]
  - DYSPNOEA [None]
  - DYSPNOEA EXERTIONAL [None]
  - EUSTACHIAN TUBE DYSFUNCTION [None]
  - GASTROOESOPHAGEAL REFLUX DISEASE [None]
  - GENERALISED ANXIETY DISORDER [None]
  - HYPERTENSION [None]
  - HYPOAESTHESIA [None]
  - HYPOKINESIA [None]
  - HYPOTHYROIDISM [None]
  - ISCHAEMIA [None]
  - LUNG CYST BENIGN [None]
  - MITRAL VALVE INCOMPETENCE [None]
  - MYOCARDIAL INFARCTION [None]
  - PULMONARY VALVE INCOMPETENCE [None]
  - SINUS DISORDER [None]
  - TRICUSPID VALVE INCOMPETENCE [None]
